FAERS Safety Report 7730111-4 (Version None)
Quarter: 2011Q3

REPORT INFORMATION
  Report Type: 
  Country: None (occurrence: None)
  Receive Date: 20110906
  Receipt Date: 20110829
  Transmission Date: 20111222
  Serious: Yes (Hospitalization, Other)
  Sender: FDA-Public Use
  Company Number: PHHY2011KR76980

PATIENT

DRUGS (2)
  1. TEGRETOL [Suspect]
     Dosage: 18 DF, (18 TABLETS AT ONCE)
     Route: 048
  2. TEGRETOL [Suspect]
     Dosage: UNK UKN, UNK
     Route: 048
     Dates: end: 20110601

REACTIONS (2)
  - CONVULSION [None]
  - OVERDOSE [None]
